FAERS Safety Report 8438587-4 (Version None)
Quarter: 2012Q2

REPORT INFORMATION
  Report Type: 
  Country: None (occurrence: None)
  Receive Date: 20120615
  Receipt Date: 20120611
  Transmission Date: 20120825
  Serious: No
  Sender: FDA-Public Use
  Company Number: US-PFIZER INC-2012140020

PATIENT
  Sex: Male

DRUGS (1)
  1. SUTENT [Suspect]
     Indication: MALIGNANT SOFT TISSUE NEOPLASM
     Dosage: 37.5 MG, UNK
     Dates: start: 20120131, end: 20120611

REACTIONS (2)
  - MALIGNANT SOFT TISSUE NEOPLASM [None]
  - DISEASE PROGRESSION [None]
